FAERS Safety Report 8186752-6 (Version None)
Quarter: 2012Q1

REPORT INFORMATION
  Report Type: 
  Country: None (occurrence: None)
  Receive Date: 20120306
  Receipt Date: 20120306
  Transmission Date: 20120608
  Serious: No
  Sender: FDA-Public Use
  Company Number: None

PATIENT
  Age: 53 Year
  Sex: Female
  Weight: 66.678 kg

DRUGS (1)
  1. TEV-TROPIN [Suspect]
     Indication: POSTMENOPAUSE
     Dosage: 1IU
     Route: 058
     Dates: start: 20111110, end: 20120101

REACTIONS (5)
  - ARTHRALGIA [None]
  - TENDONITIS [None]
  - PAIN IN EXTREMITY [None]
  - DUPUYTREN'S CONTRACTURE [None]
  - NEUROMA [None]
